FAERS Safety Report 13921306 (Version 1)
Quarter: 2017Q3

REPORT INFORMATION
  Report Type: Spontaneous
  Country: TR (occurrence: TR)
  Receive Date: 20170830
  Receipt Date: 20170830
  Transmission Date: 20171127
  Serious: Yes (Life-Threatening, Hospitalization, Other)
  Sender: FDA-Public Use
  Company Number: TR-PFIZER INC-2016451928

PATIENT
  Age: 38 Year
  Sex: Male

DRUGS (2)
  1. MEROPENEM. [Suspect]
     Active Substance: MEROPENEM
     Dosage: 3 G, DAILY
     Route: 042
  2. PETHIDINE [Suspect]
     Active Substance: MEPERIDINE
     Indication: ANALGESIC THERAPY
     Dosage: 50 MG, DAILY

REACTIONS (4)
  - Eosinophilic pneumonia [Recovered/Resolved]
  - Eosinophilia [Recovered/Resolved]
  - Eosinophilic myocarditis [Recovered/Resolved]
  - Hypereosinophilic syndrome [Recovered/Resolved]
